FAERS Safety Report 4831861-X (Version None)
Quarter: 2005Q4

REPORT INFORMATION
  Report Type: 
  Country: None (occurrence: None)
  Receive Date: 20051116
  Receipt Date: 20051101
  Transmission Date: 20060501
  Serious: Yes (Hospitalization)
  Sender: FDA-Public Use
  Company Number: 8013083

PATIENT
  Age: 5 Year
  Sex: Male

DRUGS (6)
  1. KEPPRA [Suspect]
     Indication: EPILEPSY
     Dosage: 4 ML 2/D PO
     Route: 048
     Dates: start: 20050724
  2. DEPAKENE [Suspect]
     Indication: EPILEPSY
     Dosage: 4 ML 3/D PO
     Route: 048
     Dates: start: 20010831
  3. DIPHANTOINE Z [Suspect]
     Indication: EPILEPSY
     Dosage: 46 MG 2/D PO
     Route: 048
     Dates: start: 20020702
  4. DIPHANTOINE Z [Suspect]
     Indication: EPILEPSY
     Dosage: 23 MG 2/D PO
     Route: 048
     Dates: start: 20020702
  5. RIVOTRIL [Suspect]
     Indication: EPILEPSY
     Dosage: 5 GTT 1/D
     Dates: start: 20020331
  6. CHLORAL HYDRATE [Concomitant]

REACTIONS (4)
  - CONDITION AGGRAVATED [None]
  - DRUG INTERACTION [None]
  - EPILEPSY [None]
  - FOOD INTERACTION [None]
